FAERS Safety Report 4991103-1 (Version None)
Quarter: 2006Q2

REPORT INFORMATION
  Report Type: 
  Country: None (occurrence: None)
  Receive Date: 20060428
  Receipt Date: 20050421
  Transmission Date: 20061013
  Serious: Yes (Life-Threatening)
  Sender: FDA-Public Use
  Company Number: 200513992GDS

PATIENT
  Age: 83 Year
  Sex: Female
  Weight: 65 kg

DRUGS (8)
  1. AVELOX [Suspect]
     Indication: PNEUMONIA
     Dosage: 400MG QD ORAL
     Route: 048
     Dates: start: 20050101, end: 20050103
  2. ALDACTONE [Concomitant]
  3. ATIVAN [Concomitant]
  4. BISOPROLOL [Concomitant]
  5. LASIX [Concomitant]
  6. PAROXETINE [Concomitant]
  7. TRAZODONE HCL [Concomitant]
  8. WARFARIN SODIUM [Concomitant]

REACTIONS (6)
  - DELIRIUM [None]
  - HEPATITIS [None]
  - MUSCLE SPASMS [None]
  - MYOCLONUS [None]
  - RENAL FAILURE [None]
  - RHABDOMYOLYSIS [None]
